FAERS Safety Report 7559384-8 (Version None)
Quarter: 2011Q2

REPORT INFORMATION
  Report Type: 
  Country: None (occurrence: None)
  Receive Date: 20110617
  Receipt Date: 20110617
  Transmission Date: 20111010
  Serious: Yes (Hospitalization)
  Sender: FDA-Public Use
  Company Number: None

PATIENT
  Age: 69 Year
  Sex: Male
  Weight: 87 kg

DRUGS (2)
  1. WARFARIN SODIUM [Suspect]
     Indication: ATRIAL FIBRILLATION
     Dosage: 2.5 MG EVERY DAY PO
     Route: 048
     Dates: start: 20051013
  2. WARFARIN SODIUM [Suspect]
     Indication: TRANSIENT ISCHAEMIC ATTACK
     Dosage: 2.5 MG EVERY DAY PO
     Route: 048
     Dates: start: 20051013

REACTIONS (2)
  - ATRIAL FIBRILLATION [None]
  - TRANSIENT ISCHAEMIC ATTACK [None]
